FAERS Safety Report 5826621-7 (Version None)
Quarter: 2008Q3

REPORT INFORMATION
  Report Type: 
  Country: None (occurrence: None)
  Receive Date: 20080728
  Receipt Date: 20080728
  Transmission Date: 20090109
  Serious: Yes (Hospitalization, Other)
  Sender: FDA-Public Use
  Company Number: None

PATIENT
  Age: 45 Year
  Sex: Female
  Weight: 54.4316 kg

DRUGS (2)
  1. FENTANYL-75 [Suspect]
     Indication: BACK DISORDER
     Dosage: 75 MCG EVERY THREE DAYS TRANSDERMAL
     Route: 062
     Dates: start: 20080101, end: 20080602
  2. FENTANYL-75 [Suspect]
     Indication: SPINAL COLUMN STENOSIS
     Dosage: 75 MCG EVERY THREE DAYS TRANSDERMAL
     Route: 062
     Dates: start: 20080101, end: 20080602

REACTIONS (20)
  - ABASIA [None]
  - ACTIVITIES OF DAILY LIVING IMPAIRED [None]
  - ANOREXIA [None]
  - ARTHRALGIA [None]
  - CONTUSION [None]
  - DEVICE FAILURE [None]
  - DRUG ADMINISTRATION ERROR [None]
  - DYSPHEMIA [None]
  - FIBROMYALGIA [None]
  - HEADACHE [None]
  - IMPAIRED DRIVING ABILITY [None]
  - INCORRECT DOSE ADMINISTERED [None]
  - LOSS OF EMPLOYMENT [None]
  - MALAISE [None]
  - MYALGIA [None]
  - PAIN [None]
  - PAIN IN EXTREMITY [None]
  - SUICIDAL IDEATION [None]
  - WEIGHT DECREASED [None]
  - WITHDRAWAL SYNDROME [None]
